FAERS Safety Report 6909077-2 (Version None)
Quarter: 2010Q3

REPORT INFORMATION
  Report Type: 
  Country: None (occurrence: None)
  Receive Date: 20100716
  Receipt Date: 20090120
  Transmission Date: 20110219
  Serious: Yes (Hospitalization, Disabling, Other)
  Sender: FDA-Public Use
  Company Number: 2006085047

PATIENT
  Age: 46 Year
  Sex: Male
  Weight: 84.8 kg

DRUGS (1)
  1. CELEBREX [Suspect]
     Indication: PAIN
     Dosage: 100 MG, ORAL
     Route: 048
     Dates: start: 20020629

REACTIONS (3)
  - ANXIETY [None]
  - DEEP VEIN THROMBOSIS [None]
  - MYOCARDIAL INFARCTION [None]
